FAERS Safety Report 16001897 (Version 2)
Quarter: 2019Q1

REPORT INFORMATION
  Report Type: Spontaneous
  Country: JP (occurrence: JP)
  Receive Date: 20190225
  Receipt Date: 20190305
  Transmission Date: 20190418
  Serious: Yes (Other)
  Sender: FDA-Public Use
  Company Number: PHJP2019JP000967

PATIENT
  Age: 84 Year
  Sex: Male
  Weight: 62 kg

DRUGS (3)
  1. EQUMET [Suspect]
     Active Substance: METFORMIN HYDROCHLORIDE\VILDAGLIPTIN
     Indication: TYPE 2 DIABETES MELLITUS
     Dosage: 1 DF: METFORMIN 250 MG/VILDAGLIPTIN 50 MG, BID
     Route: 048
     Dates: start: 20181201, end: 20181203
  2. MECOBALAMIN [Concomitant]
     Active Substance: METHYLCOBALAMIN
     Indication: HYPOAESTHESIA
     Dosage: 1 DF, QD
     Route: 048
     Dates: start: 20180319
  3. EXFORGE [Suspect]
     Active Substance: AMLODIPINE BESYLATE\VALSARTAN
     Indication: HYPERTENSION
     Dosage: 1 DF, QD
     Route: 048
     Dates: start: 20120518

REACTIONS (2)
  - Somnolence [Recovered/Resolved]
  - Physical deconditioning [Recovered/Resolved]

NARRATIVE: CASE EVENT DATE: 20181201
